FAERS Safety Report 21484637 (Version 1)
Quarter: 2022Q4

REPORT INFORMATION
  Report Type: Spontaneous
  Country: US (occurrence: US)
  Receive Date: 20221020
  Receipt Date: 20221020
  Transmission Date: 20230113
  Serious: Yes (Hospitalization)
  Sender: FDA-Public Use
  Company Number: US-REGENERON PHARMACEUTICALS, INC.-2022-134908

PATIENT
  Sex: Male

DRUGS (2)
  1. EYLEA [Suspect]
     Active Substance: AFLIBERCEPT
     Indication: Diabetic retinopathy
     Dosage: FORMULATION: PFS (UNKNOWN)
  2. EYLEA [Suspect]
     Active Substance: AFLIBERCEPT
     Dosage: FORMULATION: PFS (UNKNOWN)

REACTIONS (2)
  - Hospitalisation [Unknown]
  - Product dose omission issue [Recovered/Resolved]
